FAERS Safety Report 8474631-6 (Version None)
Quarter: 2012Q2

REPORT INFORMATION
  Report Type: 
  Country: None (occurrence: None)
  Receive Date: 20120628
  Receipt Date: 20120625
  Transmission Date: 20120825
  Serious: Yes (Hospitalization)
  Sender: FDA-Public Use
  Company Number: US-SP-2012-04885

PATIENT
  Sex: Male

DRUGS (2)
  1. THERACYS [Suspect]
     Indication: BLADDER CANCER
     Route: 043
     Dates: end: 20120405
  2. VESICARE [Concomitant]

REACTIONS (7)
  - RENAL FAILURE ACUTE [None]
  - MALAISE [None]
  - PYURIA [None]
  - DEHYDRATION [None]
  - VOMITING [None]
  - URINARY TRACT INFECTION [None]
  - NAUSEA [None]
